FAERS Safety Report 25723771 (Version 2)
Quarter: 2025Q3

REPORT INFORMATION
  Report Type: Spontaneous
  Country: US (occurrence: US)
  Receive Date: 20250825
  Receipt Date: 20250910
  Transmission Date: 20251021
  Serious: Yes (Disabling, Other)
  Sender: NOVARTIS
  Company Number: US-002147023-NVSC2025US129622

PATIENT
  Age: 62 Year
  Sex: Female
  Weight: 87 kg

DRUGS (1)
  1. KISQALI [Suspect]
     Active Substance: RIBOCICLIB SUCCINATE
     Indication: Breast cancer metastatic
     Dosage: 600 MG, QD (THREE WEEKS ON AND ONE WEEK OFF)
     Route: 048
     Dates: start: 20250410, end: 20250731

REACTIONS (1)
  - Pneumonitis [Not Recovered/Not Resolved]

NARRATIVE: CASE EVENT DATE: 20250501
